FAERS Safety Report 16365460 (Version 2)
Quarter: 2019Q3

REPORT INFORMATION
  Report Type: Spontaneous
  Country: MT (occurrence: MT)
  Receive Date: 20190529
  Receipt Date: 20190926
  Transmission Date: 20191004
  Serious: Yes (Other)
  Sender: FDA-Public Use
  Company Number: MT-AUROBINDO-AUR-APL-2019-007184

PATIENT
  Age: 66 Year
  Sex: Male

DRUGS (4)
  1. SIMVASTATIN. [Suspect]
     Active Substance: SIMVASTATIN
     Indication: PRODUCT USED FOR UNKNOWN INDICATION
     Dosage: 20 MILLIGRAM, ONCE A DAY
     Route: 065
  2. ATORVASTATIN [Suspect]
     Active Substance: ATORVASTATIN
     Indication: PRODUCT USED FOR UNKNOWN INDICATION
     Dosage: 20 MICROGRAM, DAILY (20 MICROGRAM PER DAY )
     Route: 065
  3. ATORVASTATIN [Suspect]
     Active Substance: ATORVASTATIN
     Dosage: 20 MILLIGRAM, ONCE A DAY
     Route: 065
  4. SIMVASTATIN TABLET [Suspect]
     Active Substance: SIMVASTATIN
     Indication: PRODUCT USED FOR UNKNOWN INDICATION
     Dosage: 20 MICROGRAM, DAILY (20 MICROGRAM PER DAY )
     Route: 048

REACTIONS (11)
  - Muscular weakness [Recovering/Resolving]
  - Hepatic steatosis [Unknown]
  - Forced vital capacity increased [Unknown]
  - Immune-mediated necrotising myopathy [Recovering/Resolving]
  - Condition aggravated [Unknown]
  - Blood creatinine increased [Unknown]
  - Alanine aminotransferase increased [Unknown]
  - Muscle necrosis [Recovering/Resolving]
  - Hepatic function abnormal [Unknown]
  - Blood bilirubin increased [Unknown]
  - Muscle atrophy [Recovering/Resolving]
